FAERS Safety Report 8606779-7 (Version None)
Quarter: 2012Q3

REPORT INFORMATION
  Report Type: 
  Country: None (occurrence: None)
  Receive Date: 20120820
  Receipt Date: 20120808
  Transmission Date: 20120928
  Serious: Yes (Hospitalization, Other)
  Sender: FDA-Public Use
  Company Number: CO-ELI_LILLY_AND_COMPANY-CO201208003257

PATIENT
  Age: 75 Year
  Sex: Male

DRUGS (8)
  1. LEUCOVORIN CALCIUM [Concomitant]
  2. METOPROLOL TARTRATE [Concomitant]
  3. AMLODIPINE [Concomitant]
  4. LOVASTATIN [Concomitant]
  5. ENALAPRIL MALEATE [Concomitant]
  6. BYETTA [Suspect]
     Indication: TYPE 2 DIABETES MELLITUS
     Dosage: 5 UG, QD
     Route: 058
     Dates: start: 20120806, end: 20120801
  7. HUMULIN N [Concomitant]
  8. FUROSEMIDE [Concomitant]

REACTIONS (5)
  - SYNCOPE [None]
  - STRABISMUS [None]
  - HYPOGLYCAEMIA [None]
  - AGGRESSION [None]
  - INCOHERENT [None]
